FAERS Safety Report 6294241-9 (Version None)
Quarter: 2009Q3

REPORT INFORMATION
  Report Type: 
  Country: None (occurrence: None)
  Receive Date: 20090803
  Receipt Date: 20090331
  Transmission Date: 20100115
  Serious: No
  Sender: FDA-Public Use
  Company Number: A0776382A

PATIENT
  Age: 43 Year
  Sex: Male

DRUGS (1)
  1. NICORETTE (MINT) [Suspect]
     Dates: start: 20090315, end: 20090321

REACTIONS (2)
  - SWELLING FACE [None]
  - THROAT IRRITATION [None]
